FAERS Safety Report 8165107-4 (Version None)
Quarter: 2012Q1

REPORT INFORMATION
  Report Type: 
  Country: None (occurrence: None)
  Receive Date: 20120227
  Receipt Date: 20120213
  Transmission Date: 20120608
  Serious: Yes (Death, Life-Threatening, Hospitalization)
  Sender: FDA-Public Use
  Company Number: DE-RANBAXY-2010RR-33456

PATIENT
  Age: 85 Year
  Sex: Male

DRUGS (6)
  1. METFORMIN HCL [Suspect]
     Indication: TYPE 2 DIABETES MELLITUS
     Dosage: 850 MG, BID
     Route: 048
     Dates: end: 20080717
  2. TRIAMPUR [Suspect]
     Indication: HYPERTENSION
     Dosage: 1 DF, UNK
     Route: 048
     Dates: end: 20080717
  3. AGGRENOX [Suspect]
     Indication: CEREBROVASCULAR ACCIDENT
     Dosage: 1 DF, UNK
     Route: 048
     Dates: start: 20080501, end: 20080717
  4. CAPTOPRIL AND HYDROCHLOROTHIAZIDE [Suspect]
     Indication: HYPERTENSION
     Dosage: 1 DF, UNK
     Route: 048
     Dates: start: 20080501, end: 20080717
  5. MADOPAR [Suspect]
     Indication: CEREBROVASCULAR ACCIDENT
     Dosage: 125 MG, UNK
     Route: 048
     Dates: end: 20080720
  6. EXELON [Concomitant]
     Indication: DEMENTIA
     Dosage: 3 MG, UNK
     Route: 048
     Dates: end: 20080730

REACTIONS (4)
  - THROMBOCYTOPENIA [None]
  - METABOLIC ACIDOSIS [None]
  - RENAL FAILURE ACUTE [None]
  - BLOOD SODIUM INCREASED [None]
